FAERS Safety Report 18784480 (Version 1)
Quarter: 2021Q1

REPORT INFORMATION
  Report Type: Spontaneous
  Country: US (occurrence: US)
  Receive Date: 20210125
  Receipt Date: 20210125
  Transmission Date: 20210419
  Serious: No
  Sender: FDA-Public Use
  Company Number: US-ROCHE-2541215

PATIENT
  Age: 73 Year
  Sex: Female

DRUGS (2)
  1. EPINEPHRINE. [Concomitant]
     Active Substance: EPINEPHRINE
     Dates: start: 20191115
  2. RITUXAN [Suspect]
     Active Substance: RITUXIMAB
     Indication: REMISSION NOT ACHIEVED
     Dosage: ONGOING:YES
     Route: 065
     Dates: start: 20191217

REACTIONS (3)
  - Intentional product use issue [Unknown]
  - Off label use [Unknown]
  - No adverse event [Unknown]
